FAERS Safety Report 18195757 (Version 2)
Quarter: 2022Q3

REPORT INFORMATION
  Report Type: Spontaneous
  Country: DE (occurrence: DE)
  Receive Date: 20200826
  Receipt Date: 20220702
  Transmission Date: 20221027
  Serious: Yes (Other)
  Sender: FDA-Public Use
  Company Number: DE-AUROBINDO-AUR-APL-2020-044720

PATIENT
  Age: 69 Year
  Sex: Female

DRUGS (12)
  1. LEUCOVORIN [Suspect]
     Active Substance: LEUCOVORIN
     Indication: Adenocarcinoma pancreas
     Dosage: UNK
     Route: 065
     Dates: start: 201102
  2. LEUCOVORIN [Suspect]
     Active Substance: LEUCOVORIN
     Indication: Metastases to liver
     Dosage: REDUCE CHEMOTHERAPY DOSE IN A FIRST STEP TO 75% OF STANDARD DOSE
     Route: 065
     Dates: start: 201110
  3. LEUCOVORIN [Suspect]
     Active Substance: LEUCOVORIN
     Indication: Pancreatic carcinoma metastatic
     Dosage: REDUCTION TO 60% OF STANDARD DOSE
     Route: 065
     Dates: start: 201211
  4. IRINOTECAN [Suspect]
     Active Substance: IRINOTECAN
     Indication: Adenocarcinoma pancreas
     Dosage: UNK
     Route: 065
     Dates: start: 201102
  5. IRINOTECAN [Suspect]
     Active Substance: IRINOTECAN
     Indication: Metastases to liver
     Dosage: REDUCE CHEMOTHERAPY DOSE IN A FIRST STEP TO 75% OF STANDARD DOSE
     Route: 065
     Dates: start: 201110
  6. IRINOTECAN [Suspect]
     Active Substance: IRINOTECAN
     Indication: Pancreatic carcinoma metastatic
     Dosage: REDUCTION TO 60% OF STANDARD DOSE
     Route: 065
     Dates: start: 201211
  7. OXALIPLATIN [Suspect]
     Active Substance: OXALIPLATIN
     Indication: Adenocarcinoma pancreas
     Dosage: UNK
     Route: 065
     Dates: start: 201102
  8. OXALIPLATIN [Suspect]
     Active Substance: OXALIPLATIN
     Indication: Metastases to liver
     Dosage: REDUCE CHEMOTHERAPY DOSE IN A FIRST STEP TO 75% OF STANDARD DOSE
     Route: 065
     Dates: start: 201110
  9. OXALIPLATIN [Suspect]
     Active Substance: OXALIPLATIN
     Indication: Pancreatic carcinoma metastatic
     Dosage: UNK (REDUCTION TO 60% OF STANDARD DOSE)
     Route: 065
     Dates: start: 201211
  10. FLUOROURACIL [Suspect]
     Active Substance: FLUOROURACIL
     Indication: Adenocarcinoma pancreas
     Dosage: UNK
     Route: 065
     Dates: start: 201102
  11. FLUOROURACIL [Suspect]
     Active Substance: FLUOROURACIL
     Indication: Metastases to liver
     Dosage: UNK (REDUCTION OF CHEMOTHERAPY DOSE IN A FIRST STEP TO 75% OF STANDARD DOSE)
     Route: 065
     Dates: start: 201110
  12. FLUOROURACIL [Suspect]
     Active Substance: FLUOROURACIL
     Indication: Pancreatic carcinoma metastatic

REACTIONS (6)
  - Thrombocytopenia [Unknown]
  - Polyneuropathy [Unknown]
  - Neutropenia [Unknown]
  - Leukopenia [Unknown]
  - Mucosal inflammation [Unknown]
  - Paraesthesia [Recovered/Resolved]
